FAERS Safety Report 11392875 (Version 8)
Quarter: 2017Q4

REPORT INFORMATION
  Report Type: Report from Study
  Country: JP (occurrence: JP)
  Receive Date: 20150818
  Receipt Date: 20171012
  Transmission Date: 20180320
  Serious: Yes (Hospitalization, Other)
  Sender: FDA-Public Use
  Company Number: JP-AMGEN-JPNCT2015067416

PATIENT
  Age: 79 Year
  Sex: Male
  Weight: 48.4 kg

DRUGS (43)
  1. PANITUMUMAB [Suspect]
     Active Substance: PANITUMUMAB
     Dosage: 330 MG, Q2WK
     Route: 041
     Dates: start: 20160512, end: 20160623
  2. FLUOROURACIL. [Suspect]
     Active Substance: FLUOROURACIL
     Dosage: 300 MG, Q2WK
     Route: 040
     Dates: start: 20150903, end: 20150903
  3. CALCIUM LEVOFOLINATE [Suspect]
     Active Substance: LEVOLEUCOVORIN CALCIUM
     Indication: RECTAL CANCER
     Dosage: 300 MG, Q2WEEKS
     Route: 041
     Dates: start: 20150507, end: 20150618
  4. CALCIUM LEVOFOLINATE [Suspect]
     Active Substance: LEVOLEUCOVORIN CALCIUM
     Dosage: 300 MG, Q2WEEKS
     Route: 041
     Dates: start: 20150716, end: 20150730
  5. CALCIUM LEVOFOLINATE [Suspect]
     Active Substance: LEVOLEUCOVORIN CALCIUM
     Dosage: 300 MG, Q2WEEKS
     Route: 041
     Dates: start: 20160915, end: 20160929
  6. PANITUMUMAB [Suspect]
     Active Substance: PANITUMUMAB
     Dosage: 330 MG, Q2WK
     Route: 041
     Dates: start: 20151112, end: 20151126
  7. PANITUMUMAB [Suspect]
     Active Substance: PANITUMUMAB
     Dosage: 330 MG, Q2WK
     Route: 041
     Dates: start: 20151224, end: 20160317
  8. OXALIPLATIN. [Suspect]
     Active Substance: OXALIPLATIN
     Dosage: 100 MG, Q2WEEKS
     Route: 041
     Dates: start: 20150716, end: 20150730
  9. OXALIPLATIN. [Suspect]
     Active Substance: OXALIPLATIN
     Dosage: 100 MG, Q2WEEKS
     Route: 041
     Dates: start: 20150903, end: 20150903
  10. FLUOROURACIL. [Suspect]
     Active Substance: FLUOROURACIL
     Dosage: 300 MG, Q2WEEKS
     Route: 040
     Dates: start: 20150716, end: 20150730
  11. CALCIUM LEVOFOLINATE [Suspect]
     Active Substance: LEVOLEUCOVORIN CALCIUM
     Dosage: 300 MG, Q2WEEKS
     Route: 041
     Dates: start: 20160414, end: 20160414
  12. PALONOSETRON HYDROCHLORIDE. [Suspect]
     Active Substance: PALONOSETRON HYDROCHLORIDE
     Indication: PROPHYLAXIS OF NAUSEA AND VOMITING
     Dosage: 0.75 MG, UNK
     Route: 042
     Dates: start: 20150507, end: 20160929
  13. PANITUMUMAB [Suspect]
     Active Substance: PANITUMUMAB
     Dosage: 330 MG, Q2WK
     Route: 041
     Dates: start: 20150716, end: 20150730
  14. PANITUMUMAB [Suspect]
     Active Substance: PANITUMUMAB
     Dosage: 330 MG, Q2WK
     Route: 041
     Dates: start: 20160721, end: 20160818
  15. PANITUMUMAB [Suspect]
     Active Substance: PANITUMUMAB
     Dosage: 330 MG, Q2WK
     Route: 041
     Dates: start: 20170302, end: 20170622
  16. PANITUMUMAB [Suspect]
     Active Substance: PANITUMUMAB
     Dosage: 330 MG, Q2WK
     Route: 041
     Dates: start: 20170803, end: 20170831
  17. OXALIPLATIN. [Suspect]
     Active Substance: OXALIPLATIN
     Dosage: 80 MG, Q2WEEKS
     Route: 041
     Dates: start: 20151112, end: 20151126
  18. FLUOROURACIL. [Suspect]
     Active Substance: FLUOROURACIL
     Dosage: 1600 MG/M2, Q2WEEKS
     Route: 041
     Dates: start: 20151112, end: 20151126
  19. FLUOROURACIL. [Suspect]
     Active Substance: FLUOROURACIL
     Dosage: 1600 MG/M2, Q2WEEKS
     Route: 041
     Dates: start: 20151224, end: 20160317
  20. CALCIUM LEVOFOLINATE [Suspect]
     Active Substance: LEVOLEUCOVORIN CALCIUM
     Dosage: 300 MG, Q2WEEKS
     Route: 041
     Dates: start: 20151112, end: 20151126
  21. PANITUMUMAB [Suspect]
     Active Substance: PANITUMUMAB
     Dosage: 330 MG, Q2WK
     Route: 041
     Dates: start: 20151008, end: 20151008
  22. FLUOROURACIL. [Suspect]
     Active Substance: FLUOROURACIL
     Dosage: 1600 MG/M2, Q2WEEKS
     Route: 041
     Dates: start: 20160721, end: 20160818
  23. PANITUMUMAB [Suspect]
     Active Substance: PANITUMUMAB
     Dosage: 330 MG, Q2WK
     Route: 041
     Dates: start: 20161110, end: 20170202
  24. FLUOROURACIL. [Suspect]
     Active Substance: FLUOROURACIL
     Dosage: 3150 MG, Q2WEEKS
     Route: 041
     Dates: start: 20150903, end: 20150903
  25. FLUOROURACIL. [Suspect]
     Active Substance: FLUOROURACIL
     Dosage: 1600 MG/M2, Q2WEEKS
     Route: 041
     Dates: start: 20160915, end: 20161001
  26. PANITUMUMAB [Suspect]
     Active Substance: PANITUMUMAB
     Indication: RECTAL CANCER
     Dosage: 330 MG, Q2WK
     Route: 041
     Dates: start: 20150507, end: 20150618
  27. PANITUMUMAB [Suspect]
     Active Substance: PANITUMUMAB
     Dosage: 330 MG, Q2WK
     Route: 041
     Dates: start: 20160915, end: 20160929
  28. FLUOROURACIL. [Suspect]
     Active Substance: FLUOROURACIL
     Dosage: 1600 MG/M2, Q2WEEKS
     Route: 041
     Dates: start: 20151008, end: 20151008
  29. CALCIUM LEVOFOLINATE [Suspect]
     Active Substance: LEVOLEUCOVORIN CALCIUM
     Dosage: 300 MG, Q2WEEKS
     Route: 041
     Dates: start: 20151008, end: 20151008
  30. FOSAPREPITANT MEGLUMINE [Suspect]
     Active Substance: FOSAPREPITANT
     Indication: PROPHYLAXIS OF NAUSEA AND VOMITING
     Dosage: 150 MG, UNK
     Route: 042
     Dates: start: 20150507, end: 20160929
  31. OXALIPLATIN. [Suspect]
     Active Substance: OXALIPLATIN
     Dosage: 80 MG, Q2WEEKS
     Route: 041
     Dates: start: 20151008, end: 20151008
  32. FLUOROURACIL. [Suspect]
     Active Substance: FLUOROURACIL
     Indication: RECTAL CANCER
     Dosage: 600 MG, Q2WEEKS
     Route: 040
     Dates: start: 20150507, end: 20150618
  33. FLUOROURACIL. [Suspect]
     Active Substance: FLUOROURACIL
     Dosage: 3800 MG, Q2WEEKS
     Route: 041
     Dates: start: 20150507, end: 20150620
  34. FLUOROURACIL. [Suspect]
     Active Substance: FLUOROURACIL
     Dosage: 1600 MG/M2, Q2WEEKS
     Route: 041
     Dates: start: 20160512, end: 20160623
  35. CALCIUM LEVOFOLINATE [Suspect]
     Active Substance: LEVOLEUCOVORIN CALCIUM
     Dosage: 300 MG, Q2WEEKS
     Route: 041
     Dates: start: 20160512, end: 20160623
  36. CALCIUM LEVOFOLINATE [Suspect]
     Active Substance: LEVOLEUCOVORIN CALCIUM
     Dosage: 300 MG, Q2WEEKS
     Route: 041
     Dates: start: 20160721, end: 20160818
  37. PANITUMUMAB [Suspect]
     Active Substance: PANITUMUMAB
     Dosage: 330 MG, Q2WK
     Route: 041
     Dates: start: 20150903, end: 20150903
  38. OXALIPLATIN. [Suspect]
     Active Substance: OXALIPLATIN
     Indication: RECTAL CANCER
     Dosage: 130 MG, Q2WEEKS
     Route: 041
     Dates: start: 20150507, end: 20150618
  39. FLUOROURACIL. [Suspect]
     Active Substance: FLUOROURACIL
     Dosage: 3150 MG, Q2WEEKS
     Route: 041
     Dates: start: 20150716, end: 20150730
  40. FLUOROURACIL. [Suspect]
     Active Substance: FLUOROURACIL
     Dosage: 1600 MG/M2, Q2WEEKS
     Route: 041
     Dates: start: 20160414, end: 20160414
  41. CALCIUM LEVOFOLINATE [Suspect]
     Active Substance: LEVOLEUCOVORIN CALCIUM
     Dosage: 300 MG, Q2WEEKS
     Route: 041
     Dates: start: 20150903, end: 20150903
  42. CALCIUM LEVOFOLINATE [Suspect]
     Active Substance: LEVOLEUCOVORIN CALCIUM
     Dosage: 300 MG, Q2WEEKS
     Route: 041
     Dates: start: 20151224, end: 20160317
  43. DEXAMETHASONE SODIUM PHOSPHATE. [Suspect]
     Active Substance: DEXAMETHASONE SODIUM PHOSPHATE
     Indication: PROPHYLAXIS OF NAUSEA AND VOMITING
     Dosage: 4.4 MG, UNK
     Route: 042
     Dates: start: 20150507, end: 20160929

REACTIONS (17)
  - Dizziness [Recovered/Resolved]
  - Anal fistula [Recovered/Resolved]
  - Decreased appetite [Recovered/Resolved]
  - Xerosis [Not Recovered/Not Resolved]
  - Dermatitis acneiform [Not Recovered/Not Resolved]
  - Pulmonary tuberculosis [Recovering/Resolving]
  - Chest discomfort [Recovered/Resolved]
  - Thrombocytopenia [Recovered/Resolved]
  - Stomatitis [Recovered/Resolved]
  - Pruritus [Not Recovered/Not Resolved]
  - Stomatitis [Recovered/Resolved]
  - Paronychia [Recovered/Resolved]
  - Dysgeusia [Not Recovered/Not Resolved]
  - Neuropathy peripheral [Recovering/Resolving]
  - Thrombocytopenia [Recovered/Resolved]
  - Malaise [Recovering/Resolving]
  - Skin fissures [Recovering/Resolving]

NARRATIVE: CASE EVENT DATE: 20150510
